FAERS Safety Report 5374257-7 (Version None)
Quarter: 2007Q2

REPORT INFORMATION
  Report Type: 
  Country: None (occurrence: None)
  Receive Date: 20070629
  Receipt Date: 20070410
  Transmission Date: 20071010
  Serious: Yes (Hospitalization)
  Sender: FDA-Public Use
  Company Number: AT-ROCHE-245928

PATIENT
  Age: 24 Year
  Sex: Male
  Weight: 87 kg

DRUGS (3)
  1. INTERFERON ALFA-2A [Suspect]
     Indication: MALIGNANT MELANOMA
     Route: 058
     Dates: start: 20000712
  2. PLACEBO [Suspect]
     Indication: MALIGNANT MELANOMA
     Route: 048
     Dates: start: 20000712
  3. PARACETAMOL [Suspect]
     Route: 048
     Dates: start: 20000712

REACTIONS (2)
  - CONTUSION [None]
  - DEAFNESS [None]
